FAERS Safety Report 9198863 (Version 1)
Quarter: 2013Q1

REPORT INFORMATION
  Report Type: Spontaneous
  Country: US (occurrence: US)
  Receive Date: 20130329
  Receipt Date: 20130329
  Transmission Date: 20140127
  Serious: Yes (Hospitalization)
  Sender: FDA-Public Use
  Company Number: US-TEVA-395326USA

PATIENT
  Sex: 0

DRUGS (1)
  1. TREANDA [Suspect]
     Indication: HODGKIN^S DISEASE
     Route: 042

REACTIONS (1)
  - Vomiting [Unknown]
